FAERS Safety Report 6234671-4 (Version None)
Quarter: 2009Q2

REPORT INFORMATION
  Report Type: 
  Country: None (occurrence: None)
  Receive Date: 20090618
  Receipt Date: 20090220
  Transmission Date: 20091009
  Serious: No
  Sender: FDA-Public Use
  Company Number: US-BAYER-200910647BCC

PATIENT
  Age: 39 Year
  Sex: Male
  Weight: 82 kg

DRUGS (3)
  1. FINACEA [Suspect]
     Indication: ROSACEA
     Route: 061
     Dates: start: 20081212
  2. METROGEL [Concomitant]
     Indication: ROSACEA
     Route: 065
  3. MINOCYCLINE HCL [Concomitant]
     Indication: ROSACEA
     Route: 065
     Dates: start: 20090219

REACTIONS (2)
  - BURNING SENSATION [None]
  - SWELLING FACE [None]
